FAERS Safety Report 8431586-8 (Version None)
Quarter: 2012Q2

REPORT INFORMATION
  Report Type: 
  Country: None (occurrence: None)
  Receive Date: 20120607
  Receipt Date: 20120607
  Transmission Date: 20120825
  Serious: Yes (Other)
  Sender: FDA-Public Use
  Company Number: None

PATIENT
  Sex: Male
  Weight: 80.2867 kg

DRUGS (3)
  1. FEXOFENADINE [Suspect]
     Indication: SEASONAL ALLERGY
     Dosage: 180 MG ONCE DAILY
     Dates: start: 20120401, end: 20120529
  2. NAPROXEN [Suspect]
     Indication: PAIN
     Dosage: 250 MG TWICE DAILY
     Dates: start: 20120120, end: 20120529
  3. NAPROXEN [Suspect]
     Indication: OSTEOARTHRITIS
     Dosage: 250 MG TWICE DAILY
     Dates: start: 20120120, end: 20120529

REACTIONS (10)
  - ABDOMINAL PAIN UPPER [None]
  - RASH [None]
  - HYPERSENSITIVITY [None]
  - FALL [None]
  - JOINT SWELLING [None]
  - FATIGUE [None]
  - MASS [None]
  - ASTHENIA [None]
  - NAUSEA [None]
  - FLATULENCE [None]
